FAERS Safety Report 6491228-8 (Version None)
Quarter: 2009Q4

REPORT INFORMATION
  Report Type: 
  Country: None (occurrence: None)
  Receive Date: 20091211
  Receipt Date: 20091202
  Transmission Date: 20100525
  Serious: Yes (Hospitalization)
  Sender: FDA-Public Use
  Company Number: PHHY2009IT46394

PATIENT
  Sex: Female

DRUGS (1)
  1. VOLTAREN [Suspect]
     Indication: DYSMENORRHOEA
     Dosage: 75 MG
     Route: 030
     Dates: start: 20090930, end: 20090930

REACTIONS (5)
  - ANGIOEDEMA [None]
  - HYPERHIDROSIS [None]
  - LIP OEDEMA [None]
  - TREMOR [None]
  - URTICARIA [None]
